FAERS Safety Report 8447615-1 (Version None)
Quarter: 2012Q2

REPORT INFORMATION
  Report Type: 
  Country: None (occurrence: None)
  Receive Date: 20120619
  Receipt Date: 20120613
  Transmission Date: 20120825
  Serious: Yes (Disabling, Other)
  Sender: FDA-Public Use
  Company Number: US-PFIZER INC-2012143745

PATIENT
  Sex: Female

DRUGS (2)
  1. KETOCONAZOLE [Concomitant]
     Dosage: 2 TABLETS IN INTERVAL OF 5-10 DAYS
     Route: 048
  2. LYRICA [Suspect]
     Indication: FIBROMYALGIA
     Dosage: 2X225MG CAPSULE, DAILY AT NIGHT
     Route: 048

REACTIONS (1)
  - ARTHRITIS [None]
